FAERS Safety Report 10422930 (Version 1)
Quarter: 2014Q3

REPORT INFORMATION
  Report Type: Spontaneous
  Country: US (occurrence: None)
  Receive Date: 20140709
  Receipt Date: 20140709
  Transmission Date: 20150326
  Serious: Yes (Hospitalization, Other)
  Sender: FDA-Public Use
  Company Number: PHEH2013US019426

PATIENT
  Age: 84 Year
  Sex: Female

DRUGS (2)
  1. GLEEVEC [Suspect]
     Active Substance: IMATINIB MESYLATE
     Indication: LEUKAEMIA
  2. TASIGNA [Concomitant]
     Active Substance: NILOTINIB

REACTIONS (5)
  - Malaise [None]
  - Pneumonia [None]
  - Anaemia [None]
  - Abasia [None]
  - Fatigue [None]
